FAERS Safety Report 24449487 (Version 2)
Quarter: 2024Q4

REPORT INFORMATION
  Report Type: Spontaneous
  Country: IT (occurrence: IT)
  Receive Date: 20241017
  Receipt Date: 20241111
  Transmission Date: 20250115
  Serious: Yes (Hospitalization, Other)
  Sender: ABBVIE
  Company Number: IT-ABBVIE-5959639

PATIENT
  Age: 48 Year
  Sex: Male

DRUGS (6)
  1. OZURDEX [Suspect]
     Active Substance: DEXAMETHASONE
     Indication: Retinal vein occlusion
     Dosage: TIME INTERVAL: AS NECESSARY: FREQUENCY TEXT: 1/6 MONTHS
     Route: 050
     Dates: start: 20241004
  2. OZURDEX [Suspect]
     Active Substance: DEXAMETHASONE
     Indication: Diabetic retinal oedema
  3. CARVEDILOL [Concomitant]
     Active Substance: CARVEDILOL
     Indication: Product used for unknown indication
     Dosage: FREQUENCY TEXT- ? X 2 DAYS
  4. ALLOPURINOL [Concomitant]
     Active Substance: ALLOPURINOL
     Indication: Product used for unknown indication
     Dosage: 300 MG?FREQUENCY TEXT: ? DAY
  5. AMLODIPINE\INDAPAMIDE\PERINDOPRIL [Concomitant]
     Active Substance: AMLODIPINE\INDAPAMIDE\PERINDOPRIL
     Indication: Product used for unknown indication
     Dosage: FREQUENCY TEXT: 1 DAY
  6. ASPIRIN [Concomitant]
     Active Substance: ASPIRIN
     Indication: Product used for unknown indication
     Dosage: 100 MG?FREQUENCY TEXT: 1 DAY

REACTIONS (4)
  - Endophthalmitis [Recovering/Resolving]
  - Staphylococcal infection [Unknown]
  - Visual acuity reduced [Unknown]
  - Eye pain [Unknown]

NARRATIVE: CASE EVENT DATE: 20240101
